FAERS Safety Report 8774725 (Version 1)
Quarter: 2012Q4

REPORT INFORMATION
  Report Type: 
  Country: HU (occurrence: HU)
  Receive Date: 20120910
  Receipt Date: 20120910
  Transmission Date: 20130627
  Serious: Yes (Other)
  Sender: FDA-Public Use
  Company Number: HU-PFIZER INC-2012219788

PATIENT
  Age: 75 Year
  Sex: Female
  Weight: 64 kg

DRUGS (8)
  1. LYRICA [Suspect]
     Indication: NEURALGIA
     Dosage: 75 mg, 1x/day
     Dates: start: 201005
  2. LYRICA [Suspect]
     Dosage: 75 mg, 2x/day
     Dates: start: 201005, end: 201005
  3. DIAPREL [Concomitant]
     Dosage: UNK
  4. GLUCOBAY [Concomitant]
     Dosage: UNK
  5. COVEREX [Concomitant]
     Dosage: UNK
  6. SINCUMAR [Concomitant]
     Dosage: UNK
  7. ATORIS [Concomitant]
     Dosage: UNK
  8. DIPANKRIN [Concomitant]
     Dosage: UNK

REACTIONS (2)
  - Monoparesis [Recovered/Resolved]
  - Oedema peripheral [Recovered/Resolved]
